FAERS Safety Report 14770400 (Version 4)
Quarter: 2020Q2

REPORT INFORMATION
  Report Type: Spontaneous
  Country: FR (occurrence: FR)
  Receive Date: 20180417
  Receipt Date: 20200410
  Transmission Date: 20200713
  Serious: Yes (Hospitalization)
  Sender: FDA-Public Use
  Company Number: FR-PFIZER INC-2018153741

PATIENT

DRUGS (14)
  1. CUBICIN [Suspect]
     Active Substance: DAPTOMYCIN
     Dosage: 5 MG/KG, 1X/DAY
     Route: 042
     Dates: start: 20130826, end: 20130904
  2. VANCOMYCIN HCL [Suspect]
     Active Substance: VANCOMYCIN HYDROCHLORIDE
     Dosage: 1.25 G, EVERY 12 HOURS
     Route: 042
     Dates: start: 20130801, end: 20130812
  3. NICOPATCH [Concomitant]
     Active Substance: NICOTINE
     Dosage: 1 DF, 1X/DAY
     Route: 062
     Dates: end: 2013
  4. CONTRAMAL [Suspect]
     Active Substance: TRAMADOL HYDROCHLORIDE
     Dosage: 100 MG, 2X/DAY
     Route: 048
     Dates: start: 20130801, end: 2013
  5. ZYVOXID [Suspect]
     Active Substance: LINEZOLID
     Dosage: 600 MG, 2X/DAY
     Route: 048
     Dates: start: 20130812, end: 20130814
  6. ACUPAN [Suspect]
     Active Substance: NEFOPAM HYDROCHLORIDE
     Dosage: 20 MG, 2X/DAY
     Route: 042
     Dates: start: 20130801, end: 2013
  7. MORPHINE SULFATE. [Suspect]
     Active Substance: MORPHINE SULFATE
     Dosage: 7.5 MG, EVERY 4 HRS
     Route: 058
     Dates: start: 20130801, end: 20130805
  8. TAZOCILLINE [Suspect]
     Active Substance: PIPERACILLIN SODIUM\TAZOBACTAM SODIUM
     Dosage: 12 G, 1X/DAY
     Dates: start: 20130820, end: 20130904
  9. LOVENOX [Concomitant]
     Active Substance: ENOXAPARIN SODIUM
     Dosage: 4000 IU, 1X/DAY
     Route: 058
  10. VANCOMYCIN HCL [Suspect]
     Active Substance: VANCOMYCIN HYDROCHLORIDE
     Dosage: 1.25 G, EVERY 12 HOURS
     Route: 042
     Dates: start: 20130814, end: 20130826
  11. INEXIUM [Suspect]
     Active Substance: ESOMEPRAZOLE
     Dosage: 40 MG, 1X/DAY
     Route: 048
     Dates: start: 20130801, end: 2013
  12. PARACETAMOL [Concomitant]
     Active Substance: ACETAMINOPHEN
     Dosage: 3 G, AS NEEDED
  13. TAZOCILLINE [Suspect]
     Active Substance: PIPERACILLIN SODIUM\TAZOBACTAM SODIUM
     Indication: ANTIBIOTIC THERAPY
     Dosage: 4G/500MG EVERY 8 HOURS
     Dates: start: 20130801, end: 20130904
  14. PERFALGAN [Concomitant]
     Active Substance: ACETAMINOPHEN
     Dosage: 1 G, 4X/DAY
     Dates: end: 20130804

REACTIONS (11)
  - Catheter site phlebitis [Unknown]
  - Rash [Unknown]
  - Cholestasis [Unknown]
  - Face oedema [Unknown]
  - Thrombophlebitis superficial [Unknown]
  - Pyrexia [Unknown]
  - Liver injury [Unknown]
  - Hypersensitivity [Unknown]
  - Eosinophilia [Unknown]
  - Chills [Unknown]
  - Nausea [Unknown]
